FAERS Safety Report 5248354-0 (Version None)
Quarter: 2007Q1

REPORT INFORMATION
  Report Type: 
  Country: None (occurrence: None)
  Receive Date: 20070227
  Receipt Date: 20070216
  Transmission Date: 20070707
  Serious: Yes (Death)
  Sender: FDA-Public Use
  Company Number: US-SANOFI-SYNTHELABO-A03200701384

PATIENT
  Sex: Male

DRUGS (6)
  1. ACETAMINOPHEN AND HYDROCODONE BITARTRATE [Concomitant]
     Dosage: UNK
     Route: 048
  2. EFFEXOR [Concomitant]
     Dosage: UNK
     Route: 048
  3. FOLTX [Concomitant]
     Dosage: UNK
     Route: 048
  4. NAMENDA [Concomitant]
     Dosage: UNK
     Route: 048
  5. RAZADYNE [Concomitant]
     Dosage: UNK
     Route: 048
  6. PLAVIX [Suspect]
     Indication: CEREBROVASCULAR ACCIDENT
     Route: 048
     Dates: start: 19990101

REACTIONS (2)
  - DYSPHAGIA [None]
  - PANCYTOPENIA [None]
